FAERS Safety Report 21631886 (Version 1)
Quarter: 2022Q4

REPORT INFORMATION
  Report Type: Spontaneous
  Country: US (occurrence: US)
  Receive Date: 20221123
  Receipt Date: 20221123
  Transmission Date: 20230113
  Serious: No
  Sender: FDA-Public Use
  Company Number: None

PATIENT
  Age: 36 Year
  Sex: Male

DRUGS (24)
  1. ISONIAZID [Suspect]
     Active Substance: ISONIAZID
     Indication: Tuberculosis
     Route: 065
     Dates: start: 20210803, end: 20210928
  2. ISONIAZID [Suspect]
     Active Substance: ISONIAZID
     Route: 065
     Dates: start: 20220303, end: 20220726
  3. ISONIAZID [Suspect]
     Active Substance: ISONIAZID
     Route: 065
     Dates: start: 20220727
  4. RIFAMPIN [Suspect]
     Active Substance: RIFAMPIN
     Indication: Tuberculosis
     Route: 065
     Dates: start: 20210929, end: 20211101
  5. RIFAMPIN [Suspect]
     Active Substance: RIFAMPIN
     Route: 065
     Dates: start: 20211102, end: 20211116
  6. RIFAMPIN [Suspect]
     Active Substance: RIFAMPIN
     Route: 065
     Dates: start: 20211117, end: 20211209
  7. RIFAMPIN [Suspect]
     Active Substance: RIFAMPIN
     Route: 065
     Dates: start: 20211228, end: 20220302
  8. RIFAMPIN [Suspect]
     Active Substance: RIFAMPIN
     Route: 065
     Dates: start: 20220303, end: 20220726
  9. RIFAMPIN [Suspect]
     Active Substance: RIFAMPIN
     Route: 065
     Dates: start: 20210803, end: 20210928
  10. RIFAMPIN [Suspect]
     Active Substance: RIFAMPIN
     Route: 065
     Dates: start: 20211209, end: 20211227
  11. RIFAMPIN [Suspect]
     Active Substance: RIFAMPIN
     Route: 065
     Dates: start: 20220727
  12. ETHAMBUTOL HYDROCHLORIDE [Suspect]
     Active Substance: ETHAMBUTOL HYDROCHLORIDE
     Indication: Lymph node tuberculosis
     Route: 065
     Dates: start: 20210803, end: 20210928
  13. PYRAZINAMIDE [Suspect]
     Active Substance: PYRAZINAMIDE
     Indication: Tuberculosis
     Route: 065
     Dates: start: 20210803, end: 20210928
  14. PYRAZINAMIDE [Suspect]
     Active Substance: PYRAZINAMIDE
     Route: 065
     Dates: start: 20211210, end: 20211227
  15. PYRAZINAMIDE [Suspect]
     Active Substance: PYRAZINAMIDE
     Route: 065
     Dates: start: 20211228, end: 20220302
  16. PYRAZINAMIDE [Suspect]
     Active Substance: PYRAZINAMIDE
     Route: 065
     Dates: start: 20220303, end: 20220726
  17. ISONIAZID;VITAMIN B6 [Concomitant]
     Route: 065
     Dates: start: 20210929, end: 20211101
  18. ISONIAZID;VITAMIN B6 [Concomitant]
     Route: 065
     Dates: start: 20211102, end: 20211116
  19. ISONIAZID;VITAMIN B6 [Concomitant]
     Route: 065
     Dates: start: 20211117, end: 20211209
  20. ISONIAZID;VITAMIN B6 [Concomitant]
     Route: 065
     Dates: start: 20211210, end: 20211227
  21. ISONIAZID;VITAMIN B6 [Concomitant]
     Route: 065
     Dates: start: 20211228, end: 20220302
  22. LEVOFLOXACIN [Concomitant]
     Active Substance: LEVOFLOXACIN
     Route: 065
     Dates: start: 20211210, end: 20211227
  23. LEVOFLOXACIN [Concomitant]
     Active Substance: LEVOFLOXACIN
     Route: 065
     Dates: start: 20211228, end: 20220302
  24. PYRIDOXINE [Concomitant]
     Active Substance: PYRIDOXINE
     Route: 065
     Dates: start: 20210803, end: 20210928

REACTIONS (3)
  - Drug level below therapeutic [Unknown]
  - Aspiration [Unknown]
  - Swelling [Unknown]

NARRATIVE: CASE EVENT DATE: 20210929
